FAERS Safety Report 5942856-7 (Version None)
Quarter: 2008Q4

REPORT INFORMATION
  Report Type: 
  Country: None (occurrence: None)
  Receive Date: 20081106
  Receipt Date: 20081028
  Transmission Date: 20090506
  Serious: Yes (Hospitalization)
  Sender: FDA-Public Use
  Company Number: US-ROCHE-594333

PATIENT
  Sex: Female

DRUGS (2)
  1. PEG-INTERFERON A-2A (RO 25-8310) [Suspect]
     Dosage: FORM: PRE FILLED SYRINGE
     Route: 065
     Dates: start: 20071022, end: 20080701
  2. RIBAVIRIN [Suspect]
     Route: 065
     Dates: start: 20071022, end: 20080701

REACTIONS (12)
  - ABDOMINAL PAIN UPPER [None]
  - ABNORMAL FAECES [None]
  - AMNESIA [None]
  - BLOOD GLUCOSE INCREASED [None]
  - BLOOD PRESSURE INCREASED [None]
  - DIZZINESS [None]
  - HEPATIC CIRRHOSIS [None]
  - HEPATIC NEOPLASM [None]
  - HEPATOSPLENOMEGALY [None]
  - NAUSEA [None]
  - URINE ODOUR ABNORMAL [None]
  - VOMITING [None]
